FAERS Safety Report 17866606 (Version 2)
Quarter: 2020Q3

REPORT INFORMATION
  Report Type: Other
  Country: ES (occurrence: ES)
  Receive Date: 20200605
  Receipt Date: 20200818
  Transmission Date: 20201103
  Serious: Yes (Hospitalization, Other)
  Sender: FDA-Public Use
  Company Number: ES-CADILA HEALTHCARE LIMITED-ES-ZYDUS-051676

PATIENT

DRUGS (4)
  1. METAMIZOLE [Suspect]
     Active Substance: METAMIZOLE
     Indication: ABDOMINAL PAIN
     Dosage: 1725 MILLIGRAM DAILY
     Route: 048
  2. DULOXETINE. [Suspect]
     Active Substance: DULOXETINE
     Indication: MAJOR DEPRESSION
     Dosage: 60 MILLIGRAM
     Route: 048
  3. NAPROXEN. [Suspect]
     Active Substance: NAPROXEN
     Indication: ABDOMINAL PAIN
     Dosage: UNK, QD UP TO 1,500 MG
     Route: 048
  4. DESVENLAFAXINE. [Suspect]
     Active Substance: DESVENLAFAXINE
     Indication: MAJOR DEPRESSION
     Dosage: 400 MG QD
     Route: 065

REACTIONS (9)
  - Intestinal stenosis [Recovered/Resolved]
  - Melaena [Recovered/Resolved]
  - Anaemia [Recovered/Resolved]
  - Gastrointestinal haemorrhage [Unknown]
  - Upper gastrointestinal haemorrhage [Recovered/Resolved]
  - Melaena [Unknown]
  - Duodenal ulcer [Recovered/Resolved]
  - Overdose [Recovered/Resolved]
  - Drug interaction [Unknown]
